FAERS Safety Report 9292463 (Version 2)
Quarter: 2013Q2

REPORT INFORMATION
  Report Type: Spontaneous
  Country: BE (occurrence: BE)
  Receive Date: 20130516
  Receipt Date: 20130520
  Transmission Date: 20140414
  Serious: Yes (Disabling)
  Sender: FDA-Public Use
  Company Number: BE-BAYER-2013-037895

PATIENT
  Age: 61 Year
  Sex: Male
  Weight: 100 kg

DRUGS (2)
  1. AVELOX [Suspect]
     Indication: ASTHMA
     Dosage: 400 MG, QD
     Route: 048
     Dates: start: 20130213, end: 20130216
  2. PANTOPRAZOLE [Concomitant]
     Indication: OESOPHAGITIS
     Dosage: 40 MG, UNK
     Route: 048
     Dates: start: 20130330

REACTIONS (5)
  - Periarthritis [Not Recovered/Not Resolved]
  - Musculoskeletal pain [Not Recovered/Not Resolved]
  - Muscle atrophy [Not Recovered/Not Resolved]
  - Asthenia [Not Recovered/Not Resolved]
  - Off label use [None]
